FAERS Safety Report 6919247-5 (Version None)
Quarter: 2010Q3

REPORT INFORMATION
  Report Type: 
  Country: None (occurrence: None)
  Receive Date: 20100811
  Receipt Date: 20100805
  Transmission Date: 20110219
  Serious: Yes (Hospitalization)
  Sender: FDA-Public Use
  Company Number: FR-ROCHE-719529

PATIENT
  Sex: Female
  Weight: 59 kg

DRUGS (2)
  1. APRANAX [Suspect]
     Indication: MUSCULOSKELETAL PAIN
     Route: 048
     Dates: start: 20100702, end: 20100704
  2. DOLIPRANE [Concomitant]
     Indication: MUSCULOSKELETAL PAIN
     Dosage: TAKEN FOR 5 DAYS
     Dates: start: 20100702

REACTIONS (3)
  - BLOOD CREATININE INCREASED [None]
  - PYELONEPHRITIS [None]
  - RENAL FAILURE ACUTE [None]
